FAERS Safety Report 12483941 (Version 1)
Quarter: 2016Q2

REPORT INFORMATION
  Report Type: Spontaneous
  Country: US (occurrence: None)
  Receive Date: 20160620
  Receipt Date: 20160620
  Transmission Date: 20160815
  Serious: Yes (Hospitalization)
  Sender: FDA-Public Use
  Company Number: None

PATIENT
  Age: 71 Year
  Sex: Male
  Weight: 85.9 kg

DRUGS (5)
  1. CLOPIDOGREL [Concomitant]
     Active Substance: CLOPIDOGREL BISULFATE
  2. ACARBOSE. [Concomitant]
     Active Substance: ACARBOSE
  3. XARELTO [Suspect]
     Active Substance: RIVAROXABAN
     Indication: ATRIAL FIBRILLATION
     Route: 048
  4. AMIODARONE [Concomitant]
     Active Substance: AMIODARONE
  5. ATORVASTATIN [Concomitant]
     Active Substance: ATORVASTATIN

REACTIONS (21)
  - Dyspnoea [None]
  - Fall [None]
  - Blood creatinine increased [None]
  - Myocardial infarction [None]
  - Diverticulum intestinal haemorrhagic [None]
  - Defect conduction intraventricular [None]
  - Alanine aminotransferase increased [None]
  - Blood potassium abnormal [None]
  - Blood alkaline phosphatase increased [None]
  - Pallor [None]
  - White blood cell count abnormal [None]
  - Sinus bradycardia [None]
  - Muscular weakness [None]
  - Ligament sprain [None]
  - Blood pressure decreased [None]
  - Heart rate decreased [None]
  - Blood urea abnormal [None]
  - Blood bilirubin increased [None]
  - Aspartate aminotransferase increased [None]
  - Atrioventricular block first degree [None]
  - International normalised ratio increased [None]

NARRATIVE: CASE EVENT DATE: 20160517
